FAERS Safety Report 24714228 (Version 1)
Quarter: 2024Q4

REPORT INFORMATION
  Report Type: Spontaneous
  Country: DK (occurrence: DK)
  Receive Date: 20241209
  Receipt Date: 20241209
  Transmission Date: 20250115
  Serious: Yes (Hospitalization)
  Sender: PFIZER
  Company Number: DK-ROCHE-10000003260

PATIENT
  Age: 73 Year
  Sex: Male
  Weight: 85.5 kg

DRUGS (53)
  1. DOXORUBICIN HYDROCHLORIDE [Suspect]
     Active Substance: DOXORUBICIN HYDROCHLORIDE
     Indication: B-cell lymphoma
     Dosage: 105 MG, EVERY 3 WEEKS
     Dates: start: 20240205
  2. DOXORUBICIN HYDROCHLORIDE [Suspect]
     Active Substance: DOXORUBICIN HYDROCHLORIDE
     Dosage: 103 UNK
     Dates: start: 20240521
  3. RITUXIMAB [Suspect]
     Active Substance: RITUXIMAB
     Indication: B-cell lymphoma
     Dosage: START DATE OF MOST RECENT DOSE OF STUDY DRUG PRIOR TO AE AND SAE 10-JUN-2024DOSE LAST STUDY DRUG ADM
     Route: 042
     Dates: start: 20240205
  4. PREDNISONE [Suspect]
     Active Substance: PREDNISONE
     Indication: B-cell lymphoma
     Dosage: 100 MG, EVERY 3 WEEKS
     Dates: start: 20240205
  5. PREDNISONE [Suspect]
     Active Substance: PREDNISONE
     Dosage: 100 UNK
     Dates: start: 20240610
  6. POLATUZUMAB VEDOTIN [Suspect]
     Active Substance: POLATUZUMAB VEDOTIN
     Indication: B-cell lymphoma
     Dosage: START DATE OF MOST RECENT DOSE OF STUDY DRUG PRIOR TO AE AND SAE 21-MAY-2024DOSE LAST STUDY DRUG ADM
     Route: 042
     Dates: start: 20240206
  7. CYCLOPHOSPHAMIDE [Suspect]
     Active Substance: CYCLOPHOSPHAMIDE
     Indication: B-cell lymphoma
     Dosage: 1568 MG, EVERY 3 WEEKS
     Dates: start: 20240205
  8. CYCLOPHOSPHAMIDE [Suspect]
     Active Substance: CYCLOPHOSPHAMIDE
     Dosage: 1552 MG
     Dates: start: 20240521
  9. METOCLOPRAMIDE [Concomitant]
     Active Substance: METOCLOPRAMIDE
     Dosage: GIVEN FOR PROPHYLAXIS IS YES
     Route: 048
     Dates: start: 20240205
  10. ZOPICLONE [Concomitant]
     Active Substance: ZOPICLONE
     Indication: Insomnia
     Dosage: 7.5 MG, AS NEEDED
     Route: 048
     Dates: start: 20240318, end: 20240705
  11. ASPIRIN [Concomitant]
     Active Substance: ASPIRIN
     Indication: Stenosis
     Dosage: 75 MG, 1X/DAY
     Route: 048
     Dates: start: 20240403
  12. ALLOPURINOL [Concomitant]
     Active Substance: ALLOPURINOL
     Indication: Tumour lysis syndrome
     Dosage: 300 MG, 1X/DAY (GIVEN FOR PROPHYLAXIS IS YES)
     Dates: start: 20240610, end: 20240614
  13. ALLOPURINOL [Concomitant]
     Active Substance: ALLOPURINOL
     Dosage: 300 MG, 1X/DAY
     Route: 048
     Dates: start: 20240521, end: 20240525
  14. ALLOPURINOL [Concomitant]
     Active Substance: ALLOPURINOL
     Dosage: GIVEN FOR PROPHYLAXIS IS YES
     Dates: start: 20240705, end: 20240705
  15. CETIRIZINE HYDROCHLORIDE [Concomitant]
     Active Substance: CETIRIZINE HYDROCHLORIDE
     Dosage: 10 MG, 1X/DAY
     Route: 048
     Dates: start: 20240521, end: 20240521
  16. CETIRIZINE HYDROCHLORIDE [Concomitant]
     Active Substance: CETIRIZINE HYDROCHLORIDE
     Dosage: 10 MG, 1X/DAY
     Route: 048
     Dates: start: 20240610, end: 20240610
  17. CETIRIZINE HYDROCHLORIDE [Concomitant]
     Active Substance: CETIRIZINE HYDROCHLORIDE
     Dosage: 10 UNK
     Route: 048
     Dates: start: 20240705, end: 20240705
  18. ATORVASTATIN [Concomitant]
     Active Substance: ATORVASTATIN
     Indication: Stenosis
     Dosage: 40 MG, 1X/DAY
     Route: 048
     Dates: start: 20240403
  19. ACETAMINOPHEN [Concomitant]
     Active Substance: ACETAMINOPHEN
     Indication: Pain
     Dosage: 1000 MG, 1X/DAY
     Route: 048
     Dates: start: 20240610, end: 20240610
  20. ACETAMINOPHEN [Concomitant]
     Active Substance: ACETAMINOPHEN
     Dosage: 1000 MG, 1X/DAY
     Route: 048
     Dates: start: 20240521, end: 20240521
  21. ACETAMINOPHEN [Concomitant]
     Active Substance: ACETAMINOPHEN
     Dosage: 1000 MG, AS NEEDED
     Route: 048
     Dates: start: 20200804
  22. ACETAMINOPHEN [Concomitant]
     Active Substance: ACETAMINOPHEN
     Dosage: 1000 MG, 1X/DAY
     Dates: start: 20240705, end: 20240705
  23. ONDANSETRON [Concomitant]
     Active Substance: ONDANSETRON
     Dosage: 24 MG, 1X/DAY, GIVEN FOR PROPHYLAXIS IS YES
     Route: 048
     Dates: start: 20240521, end: 20240521
  24. TAMSULOSIN [Concomitant]
     Active Substance: TAMSULOSIN
     Dosage: 0.4 MG, 1X/DAY
     Route: 048
     Dates: end: 20240610
  25. FINASTERIDE [Concomitant]
     Active Substance: FINASTERIDE
     Dosage: 5 MG, 1X/DAY
     Route: 048
     Dates: start: 20190811
  26. POLYETHYLENE GLYCOL 3350\POTASSIUM CHLORIDE\SODIUM BICARBONATE\SODIUM [Concomitant]
     Active Substance: POLYETHYLENE GLYCOL 3350\POTASSIUM CHLORIDE\SODIUM BICARBONATE\SODIUM CHLORIDE
     Indication: Constipation
     Dosage: UNK, AS NEEDED
     Route: 048
     Dates: start: 20240610
  27. POLYETHYLENE GLYCOL 3350\POTASSIUM CHLORIDE\SODIUM BICARBONATE\SODIUM [Concomitant]
     Active Substance: POLYETHYLENE GLYCOL 3350\POTASSIUM CHLORIDE\SODIUM BICARBONATE\SODIUM CHLORIDE
     Dosage: UNK, 1X/DAY
     Route: 048
     Dates: start: 20240226, end: 20240610
  28. POLYETHYLENE GLYCOL 3350\POTASSIUM CHLORIDE\SODIUM BICARBONATE\SODIUM [Concomitant]
     Active Substance: POLYETHYLENE GLYCOL 3350\POTASSIUM CHLORIDE\SODIUM BICARBONATE\SODIUM CHLORIDE
     Dosage: DRUG DOSE FIRST ADMINISTERED IS 1 U AS NEEDED
     Route: 048
     Dates: start: 20240226, end: 20240618
  29. PEGFILGRASTIM [Concomitant]
     Active Substance: PEGFILGRASTIM
     Dosage: 6 MG, 1X/DAY, GIVEN FOR PROPHYLAXIS IS YES
     Route: 058
     Dates: start: 20240524, end: 20240524
  30. ACYCLOVIR [Concomitant]
     Active Substance: ACYCLOVIR
     Dosage: 800 MG, 1X/DAY, GIVEN FOR PROPHYLAXIS IS YES
     Route: 048
     Dates: start: 20240205, end: 20240617
  31. ACYCLOVIR [Concomitant]
     Active Substance: ACYCLOVIR
     Dosage: GIVEN FOR PROPHYLAXIS IS YES
     Dates: start: 20240617, end: 20240624
  32. ACYCLOVIR [Concomitant]
     Active Substance: ACYCLOVIR
     Dosage: GIVEN FOR PROPHYLAXIS IS YES
     Dates: start: 20240625
  33. OLOPATADINE [Concomitant]
     Active Substance: OLOPATADINE
     Dosage: MEDICATION DOSE 2 GTT
     Dates: start: 20180426
  34. MORPHINE SULFATE [Concomitant]
     Active Substance: MORPHINE SULFATE
     Indication: Pain
     Dosage: 10 MG, 2X/DAY
     Dates: start: 20210621
  35. MORPHINE SULFATE [Concomitant]
     Active Substance: MORPHINE SULFATE
     Dosage: 10 MG, AS NEEDED
     Dates: start: 20240619
  36. MORPHINE SULFATE [Concomitant]
     Active Substance: MORPHINE SULFATE
     Dosage: 5 UNK
     Dates: start: 20240205, end: 20240619
  37. PRAMIPEXOLE [Concomitant]
     Active Substance: PRAMIPEXOLE\PRAMIPEXOLE DIHYDROCHLORIDE
     Indication: Restless legs syndrome
     Dosage: 0.27 MG, 1X/DAY
  38. DULOXETINE [Concomitant]
     Active Substance: DULOXETINE
     Indication: Neuralgia
     Dosage: 30 MG, 1X/DAY
     Dates: start: 20231117
  39. MAGNESIA [MAGNESIUM CARBONATE] [Concomitant]
     Indication: Constipation
     Dosage: 1000 MG, 1X/DAY
     Dates: start: 20240226, end: 20240618
  40. MAGNESIA [MAGNESIUM CARBONATE] [Concomitant]
     Dosage: 1000 MG, AS NEEDED
     Dates: start: 20240623
  41. SILDENAFIL [Concomitant]
     Active Substance: SILDENAFIL
     Indication: Erectile dysfunction
     Dosage: 50 MG, AS NEEDED
     Dates: start: 20240415
  42. SILDENAFIL [Concomitant]
     Active Substance: SILDENAFIL
     Dosage: 50 MG, 1X/DAY
     Dates: start: 20210111, end: 20240615
  43. SILDENAFIL [Concomitant]
     Active Substance: SILDENAFIL
     Dosage: 50 MG, AS NEEDED
     Dates: start: 20240617, end: 20240619
  44. LEVOTHYROXINE SODIUM [Concomitant]
     Active Substance: LEVOTHYROXINE SODIUM
     Indication: Hypothyroidism
     Dosage: 100 MG, WEEKLY
     Route: 048
     Dates: start: 20240222
  45. LEVOTHYROXINE SODIUM [Concomitant]
     Active Substance: LEVOTHYROXINE SODIUM
     Dosage: 200 UG, 1X/DAY
     Route: 048
     Dates: start: 20170928
  46. PANTOPRAZOLE [Concomitant]
     Active Substance: PANTOPRAZOLE
     Dosage: 40 MG, 2X/DAY
     Route: 048
     Dates: start: 20240415, end: 20240619
  47. PANTOPRAZOLE [Concomitant]
     Active Substance: PANTOPRAZOLE
     Dosage: 40 MG, 1X/DAY
     Route: 048
     Dates: start: 20240619
  48. NYSTATIN [Concomitant]
     Active Substance: NYSTATIN
     Indication: Oral fungal infection
     Dosage: UNK, 4X/DAY
     Route: 048
     Dates: start: 20240623, end: 20240701
  49. GENTAMICIN [Concomitant]
     Active Substance: GENTAMICIN
     Indication: Infection
     Dosage: 400 MG, 1X/DAY
     Route: 048
     Dates: start: 20240616, end: 20240616
  50. PIPERACILLIN SODIUM\TAZOBACTAM SODIUM [Concomitant]
     Active Substance: PIPERACILLIN SODIUM\TAZOBACTAM SODIUM
     Indication: Infection
     Dosage: 4 G, 4X/DAY
     Dates: start: 20240616, end: 20240616
  51. PIPERACILLIN SODIUM\TAZOBACTAM SODIUM [Concomitant]
     Active Substance: PIPERACILLIN SODIUM\TAZOBACTAM SODIUM
     Dosage: 12 G, 1X/DAY
     Dates: start: 20240618, end: 20240623
  52. SULFAMETHOXAZOLE AND TRIMETHOPRIM [Concomitant]
     Active Substance: SULFAMETHOXAZOLE\TRIMETHOPRIM
     Dosage: 1 DF, 1X/DAY
     Dates: start: 20240205
  53. PREDNISOLONE ACETATE [Concomitant]
     Active Substance: PREDNISOLONE ACETATE
     Dosage: 100 MG, 1X/DAY
     Dates: start: 20240610, end: 20240610

REACTIONS (1)
  - Febrile neutropenia [Recovered/Resolved]

NARRATIVE: CASE EVENT DATE: 20240615
